FAERS Safety Report 10249142 (Version 1)
Quarter: 2014Q2

REPORT INFORMATION
  Report Type: Spontaneous
  Country: US (occurrence: None)
  Receive Date: 20140522
  Receipt Date: 20140522
  Transmission Date: 20141212
  Serious: No
  Sender: FDA-Public Use
  Company Number: 1000054516

PATIENT
  Age: 79 Year
  Sex: Female

DRUGS (5)
  1. TUDORZA PRESSAIR (ACLIDINIUM BROMIDE) (400 MICROGRAM, POWDER) [Suspect]
     Indication: ASTHMA
     Dosage: 800 UG (400 UG,2 IN 1 D), RESPIRATORY (INHALATION)
     Route: 055
     Dates: start: 201312
  2. SYMBICORT (BUDESONIDE W/FORMOTEROL FUMARATE) [Concomitant]
  3. NEXIUM (ESOMEPRAZOLE SODIUM) [Concomitant]
  4. RANTIDINE (RANITIDINE HYDROCHLORIDE) [Concomitant]
  5. TOPROL (METOPROLOL SUCCINATE) [Concomitant]

REACTIONS (3)
  - Headache [None]
  - Cough [None]
  - Off label use [None]
